FAERS Safety Report 6193326-5 (Version None)
Quarter: 2009Q2

REPORT INFORMATION
  Report Type: 
  Country: None (occurrence: None)
  Receive Date: 20090513
  Receipt Date: 20090513
  Transmission Date: 20091009
  Serious: Yes (Death, Life-Threatening)
  Sender: FDA-Public Use
  Company Number: None

PATIENT
  Age: 40 Year
  Sex: Male
  Weight: 83.9154 kg

DRUGS (2)
  1. ADDERALL XR 30 [Suspect]
     Indication: ATTENTION DEFICIT/HYPERACTIVITY DISORDER
     Dosage: 30 MG 1 X PER DAY PO 4-5 YEARS
     Route: 048
  2. ADDERALL 20 [Suspect]
     Indication: ATTENTION DEFICIT/HYPERACTIVITY DISORDER
     Dosage: 5 MG OCCASSIONALLY PO
     Route: 048

REACTIONS (1)
  - CARDIOMEGALY [None]
